FAERS Safety Report 16858165 (Version 1)
Quarter: 2019Q3

REPORT INFORMATION
  Report Type: Spontaneous
  Country: DE (occurrence: DE)
  Receive Date: 20190926
  Receipt Date: 20190926
  Transmission Date: 20191005
  Serious: Yes (Other)
  Sender: FDA-Public Use
  Company Number: DE-MYLANLABS-2019M1090193

PATIENT
  Sex: Male

DRUGS (1)
  1. LORAZEPAM DURA 1 MG TABLETTEN [Suspect]
     Active Substance: LORAZEPAM
     Indication: PRODUCT USED FOR UNKNOWN INDICATION

REACTIONS (2)
  - Drug abuse [Unknown]
  - Product packaging issue [Unknown]

NARRATIVE: CASE EVENT DATE: 20190624
